FAERS Safety Report 15754032 (Version 1)
Quarter: 2018Q4

REPORT INFORMATION
  Report Type: Other
  Country: TR (occurrence: TR)
  Receive Date: 20181223
  Receipt Date: 20181223
  Transmission Date: 20190205
  Serious: Yes (Life-Threatening, Hospitalization, Other)
  Sender: FDA-Public Use
  Company Number: TR-DEXPHARM-20180979

PATIENT
  Age: 49 Year
  Sex: Male

DRUGS (1)
  1. DICLOFENAC [Suspect]
     Active Substance: DICLOFENAC
     Route: 030

REACTIONS (3)
  - Myocardial infarction [Recovered/Resolved]
  - Kounis syndrome [Recovered/Resolved]
  - Cardiac arrest [Recovered/Resolved]
